FAERS Safety Report 7044936-4 (Version None)
Quarter: 2010Q4

REPORT INFORMATION
  Report Type: 
  Country: None (occurrence: None)
  Receive Date: 20101014
  Receipt Date: 20101004
  Transmission Date: 20110411
  Serious: Yes (Other)
  Sender: FDA-Public Use
  Company Number: PHHY2010CA52408

PATIENT
  Sex: Female

DRUGS (2)
  1. SANDOSTATIN LAR [Suspect]
     Indication: ACROMEGALY
     Dosage: 10 MG, EVERY 04 WEEKS
     Route: 030
     Dates: start: 20060517
  2. ANTIBIOTICS [Concomitant]

REACTIONS (2)
  - APNOEA [None]
  - BLOOD PRESSURE INCREASED [None]
